FAERS Safety Report 16444694 (Version 4)
Quarter: 2019Q3

REPORT INFORMATION
  Report Type: Spontaneous
  Country: US (occurrence: US)
  Receive Date: 20190618
  Receipt Date: 20190814
  Transmission Date: 20191004
  Serious: Yes (Death)
  Sender: FDA-Public Use
  Company Number: US-ROCHE-2337885

PATIENT
  Age: 80 Year
  Sex: Female
  Weight: 62.6 kg

DRUGS (5)
  1. FLUOROURACIL. [Concomitant]
     Active Substance: FLUOROURACIL
     Route: 065
  2. OXALIPLATIN. [Suspect]
     Active Substance: OXALIPLATIN
     Indication: COLON CANCER
     Route: 042
     Dates: start: 20180730, end: 20190603
  3. AVASTIN [Suspect]
     Active Substance: BEVACIZUMAB
     Indication: COLON CANCER
  4. FOLINIC ACID [Concomitant]
     Active Substance: LEUCOVORIN
     Dosage: CHEMO
     Route: 065
  5. AVASTIN [Suspect]
     Active Substance: BEVACIZUMAB
     Indication: COLON CANCER
     Route: 042
     Dates: start: 20180730, end: 20190603

REACTIONS (4)
  - Thrombocytopenia [Fatal]
  - Rectal haemorrhage [Fatal]
  - Subdural haematoma [Fatal]
  - Death [Fatal]

NARRATIVE: CASE EVENT DATE: 20190603
